FAERS Safety Report 4692427-8 (Version None)
Quarter: 2005Q2

REPORT INFORMATION
  Report Type: 
  Country: None (occurrence: None)
  Receive Date: 20050616
  Receipt Date: 20050609
  Transmission Date: 20051028
  Serious: Yes (Congenital Anomaly)
  Sender: FDA-Public Use
  Company Number: CH-GDP-0511971

PATIENT
  Sex: Male

DRUGS (4)
  1. DIFFERIN [Suspect]
     Indication: ACNE
     Dosage: 1 APP QD TL
     Route: 061
     Dates: start: 20040101, end: 20040118
  2. DALACIN-T [Suspect]
     Indication: ACNE
     Dosage: 1 APP QD TL
     Route: 061
     Dates: start: 20040101, end: 20040118
  3. LUBEX [Concomitant]
  4. ITINEROL [Concomitant]

REACTIONS (17)
  - ATRIAL SEPTAL DEFECT [None]
  - CONGENITAL HEART VALVE DISORDER [None]
  - CONGENITAL PULMONARY HYPERTENSION [None]
  - DANDY-WALKER SYNDROME [None]
  - DRUG EXPOSURE DURING PREGNANCY [None]
  - ECTOPIC KIDNEY [None]
  - GROWTH RETARDATION [None]
  - HEART DISEASE CONGENITAL [None]
  - HYPOSPADIAS [None]
  - INGUINAL HERNIA [None]
  - KIDNEY MALFORMATION [None]
  - MULTIPLE CONGENITAL ABNORMALITIES [None]
  - PULMONARY MALFORMATION [None]
  - SCIMITAR SYNDROME [None]
  - TACHYCARDIA FOETAL [None]
  - VENTRICULAR EXTRASYSTOLES [None]
  - VENTRICULAR SEPTAL DEFECT [None]
